FAERS Safety Report 6555796-X (Version None)
Quarter: 2010Q1

REPORT INFORMATION
  Report Type: 
  Country: None (occurrence: None)
  Receive Date: 20100125
  Receipt Date: 20100112
  Transmission Date: 20100710
  Serious: Yes (Other)
  Sender: FDA-Public Use
  Company Number: 1000011401

PATIENT
  Sex: Male
  Weight: 68 kg

DRUGS (2)
  1. ESCITALOPRAM [Suspect]
     Indication: DEPRESSION
     Dosage: 20 MG (10 MG, 1 IN 1 D), ORAL; 10 MG EVERY 2-3 DAYS, ORAL
     Route: 048
     Dates: start: 20090801, end: 20091001
  2. ESCITALOPRAM [Suspect]
     Indication: DEPRESSION
     Dosage: 20 MG (10 MG, 1 IN 1 D), ORAL; 10 MG EVERY 2-3 DAYS, ORAL
     Route: 048
     Dates: start: 20091001, end: 20091001

REACTIONS (3)
  - GENITAL HYPOAESTHESIA [None]
  - LIBIDO DECREASED [None]
  - PARAESTHESIA [None]
